FAERS Safety Report 10060865 (Version 1)
Quarter: 2014Q2

REPORT INFORMATION
  Report Type: Spontaneous
  Country: US (occurrence: US)
  Receive Date: 20140404
  Receipt Date: 20140404
  Transmission Date: 20141212
  Serious: Yes (Other)
  Sender: FDA-Public Use
  Company Number: US-ABBVIE-14P-163-1218225-00

PATIENT
  Age: 66 Year
  Sex: Female
  Weight: 66.74 kg

DRUGS (9)
  1. HUMIRA [Suspect]
     Indication: CROHN^S DISEASE
     Dosage: LOADING DOSE
     Route: 058
     Dates: start: 20140312, end: 20140312
  2. OMEPRAZOLE [Concomitant]
     Indication: GASTROOESOPHAGEAL REFLUX DISEASE
  3. PENTASA [Concomitant]
     Indication: CROHN^S DISEASE
  4. PRAVACHOL [Concomitant]
     Indication: BLOOD CHOLESTEROL INCREASED
  5. REMERON [Concomitant]
     Indication: DEPRESSION
  6. SUCRALFATE [Concomitant]
     Indication: CROHN^S DISEASE
  7. ZOLOFT [Concomitant]
     Indication: DEPRESSION
  8. VENTOLIN [Concomitant]
     Indication: ASTHMA
     Route: 055
  9. HYDRALAZINE [Concomitant]
     Indication: HYPERTENSION

REACTIONS (3)
  - Rhabdomyolysis [Not Recovered/Not Resolved]
  - Myalgia [Not Recovered/Not Resolved]
  - Pain in extremity [Not Recovered/Not Resolved]
